FAERS Safety Report 5288510-9 (Version None)
Quarter: 2007Q2

REPORT INFORMATION
  Report Type: 
  Country: None (occurrence: None)
  Receive Date: 20070405
  Receipt Date: 20070322
  Transmission Date: 20071010
  Serious: Yes (Hospitalization)
  Sender: FDA-Public Use
  Company Number: US-JNJFOC-20070305516

PATIENT
  Sex: Female

DRUGS (9)
  1. INFLIXIMAB [Suspect]
     Indication: RHEUMATOID ARTHRITIS
  2. METHOTREXATE [Concomitant]
  3. ALTACE [Concomitant]
  4. PROPOXYPHENE HYDROCHLORIDE [Concomitant]
  5. TOPROL-XL [Concomitant]
  6. XANAX [Concomitant]
  7. OSCAL [Concomitant]
  8. VITAMIN B6 [Concomitant]
  9. VITAMIN E [Concomitant]

REACTIONS (2)
  - CHRONIC OBSTRUCTIVE PULMONARY DISEASE [None]
  - DYSPNOEA [None]
